FAERS Safety Report 5805896-4 (Version None)
Quarter: 2008Q3

REPORT INFORMATION
  Report Type: 
  Country: None (occurrence: None)
  Receive Date: 20080708
  Receipt Date: 20080626
  Transmission Date: 20090109
  Serious: Yes (Death, Hospitalization, Other)
  Sender: FDA-Public Use
  Company Number: DSA_31948_2008

PATIENT
  Sex: Female
  Weight: 82.5547 kg

DRUGS (1)
  1. CARDIZEM LA [Suspect]
     Indication: DRUG USE FOR UNKNOWN INDICATION
     Dosage: (360 MG QD ORAL)
     Route: 048
     Dates: start: 20050101, end: 20080518

REACTIONS (3)
  - BLOOD GLUCOSE INCREASED [None]
  - FLUID RETENTION [None]
  - LEUKOCYTOSIS [None]
